FAERS Safety Report 16869257 (Version 1)
Quarter: 2019Q3

REPORT INFORMATION
  Report Type: Spontaneous
  Country: FR (occurrence: FR)
  Receive Date: 20190930
  Receipt Date: 20190930
  Transmission Date: 20191005
  Serious: Yes (Other)
  Sender: FDA-Public Use
  Company Number: FR-MYLANLABS-2019M1089676

PATIENT
  Age: 69 Year
  Sex: Female
  Weight: 79.8 kg

DRUGS (3)
  1. VORICONAZOLE. [Suspect]
     Active Substance: VORICONAZOLE
     Indication: PRODUCT USED FOR UNKNOWN INDICATION
     Dosage: UNK
     Route: 065
  2. MABELIO [Suspect]
     Active Substance: CEFTOBIPROLE
     Indication: STAPHYLOCOCCAL BACTERAEMIA
  3. MABELIO [Suspect]
     Active Substance: CEFTOBIPROLE
     Indication: PNEUMONIA STAPHYLOCOCCAL
     Dosage: UNK
     Route: 065

REACTIONS (3)
  - Off label use [Unknown]
  - Respiratory distress [Unknown]
  - Seizure [Recovered/Resolved]
